FAERS Safety Report 20692006 (Version 6)
Quarter: 2022Q3

REPORT INFORMATION
  Report Type: Report from Study
  Country: BE (occurrence: BE)
  Receive Date: 20220408
  Receipt Date: 20220912
  Transmission Date: 20221026
  Serious: Yes (Hospitalization, Other)
  Sender: FDA-Public Use
  Company Number: BE-BRISTOL-MYERS SQUIBB COMPANY-2022-014740

PATIENT
  Sex: Female

DRUGS (21)
  1. ASPIRIN DL-LYSINE [Concomitant]
     Active Substance: ASPIRIN DL-LYSINE
     Indication: Headache
     Dosage: AS NEEDED
     Route: 048
     Dates: start: 20200511
  2. DICLOFENAC [Concomitant]
     Active Substance: DICLOFENAC
     Indication: Back pain
     Dosage: AS NEEDED
     Route: 048
     Dates: start: 20191108
  3. ELUDRIL [Concomitant]
     Indication: Noninfective sialoadenitis
     Dosage: 1 (COATING DOSING UNIT) AS NEEDED.? CHLORHEXIDINE GLUCONATE 0.05ML / 10ML +CHLOROBUTANOL 50 MG / 10
     Route: 048
     Dates: start: 20200224
  4. LEVOTHYROXINE [Concomitant]
     Active Substance: LEVOTHYROXINE
     Indication: Thyroidectomy
     Route: 048
     Dates: start: 20081127
  5. PRAZEPAM [Concomitant]
     Active Substance: PRAZEPAM
     Indication: Insomnia
     Dosage: AS NEEDED
     Route: 048
     Dates: start: 20161107
  6. MIRENA [Concomitant]
     Active Substance: LEVONORGESTREL
     Indication: Contraception
     Dosage: CONTINUOUS
     Route: 050
     Dates: start: 20161020, end: 20220309
  7. ESTRADIOL [Concomitant]
     Active Substance: ESTRADIOL
     Indication: Menopause
     Dosage: 1 (COAT DOSING UNIT)
     Route: 050
     Dates: start: 20170914
  8. ACETAMINOPHEN [Concomitant]
     Active Substance: ACETAMINOPHEN
     Indication: Back pain
     Dosage: AS NEEDED
     Route: 048
     Dates: start: 19870101
  9. ACETAMINOPHEN [Concomitant]
     Active Substance: ACETAMINOPHEN
     Indication: Neck pain
  10. ACETAMINOPHEN [Concomitant]
     Active Substance: ACETAMINOPHEN
     Indication: Headache
  11. ACETAMINOPHEN [Concomitant]
     Active Substance: ACETAMINOPHEN
     Indication: Pain
  12. ACETAMINOPHEN [Concomitant]
     Active Substance: ACETAMINOPHEN
     Indication: Neuralgia
  13. PERINDOPRIL [Concomitant]
     Active Substance: PERINDOPRIL
     Indication: Hypertension
     Dosage: AS NEEDED
     Route: 048
     Dates: start: 20210319
  14. ZOLPIDEM TARTRATE [Concomitant]
     Active Substance: ZOLPIDEM TARTRATE
     Indication: Insomnia
     Route: 048
     Dates: start: 20080101
  15. SUMATRIPTAN [Concomitant]
     Active Substance: SUMATRIPTAN
     Indication: Migraine
     Dosage: AS NEEDED
     Route: 048
     Dates: start: 20150304
  16. VIT D PEARLS [Concomitant]
     Indication: Vitamin D deficiency
     Dosage: 1520
     Route: 048
     Dates: start: 20161108
  17. VIT D PEARLS [Concomitant]
     Indication: Vitamin supplementation
  18. VOLTAREN [Concomitant]
     Active Substance: DICLOFENAC SODIUM
     Indication: Back pain
     Dosage: AS NEEDED
     Route: 048
     Dates: start: 20180224
  19. CURCUDYN [Concomitant]
     Indication: Osteoarthritis
     Dosage: 1 (TABLET DOSING UNIT), ONCE A DAY
     Route: 048
     Dates: start: 20211216
  20. OMEPRAZOLE [Concomitant]
     Active Substance: OMEPRAZOLE
     Indication: Abdominal pain upper
     Route: 048
     Dates: start: 20220302, end: 20220308
  21. SELENIUM;ZINC PICOLINATE [Concomitant]
     Indication: Prophylaxis
     Dosage: 1 (TABLET DOSING UNIT)ONCE A DAY
     Route: 048
     Dates: start: 20211206

REACTIONS (1)
  - Invasive lobular breast carcinoma [Recovering/Resolving]

NARRATIVE: CASE EVENT DATE: 20220304
